FAERS Safety Report 22017574 (Version 2)
Quarter: 2023Q2

REPORT INFORMATION
  Report Type: Spontaneous
  Country: US (occurrence: None)
  Receive Date: 20230221
  Receipt Date: 20230406
  Transmission Date: 20230721
  Serious: Yes (Hospitalization, Disabling, Other)
  Sender: FDA-Public Use
  Company Number: 2023A037928

PATIENT
  Age: 83 Year
  Sex: Female
  Weight: 82.1 kg

DRUGS (1)
  1. SYMBICORT [Suspect]
     Active Substance: BUDESONIDE\FORMOTEROL FUMARATE DIHYDRATE
     Indication: Asthma
     Route: 055
     Dates: start: 20100107

REACTIONS (13)
  - Renal failure [Not Recovered/Not Resolved]
  - Cardiac failure congestive [Not Recovered/Not Resolved]
  - Hypertension [Unknown]
  - Walking aid user [Not Recovered/Not Resolved]
  - Nasopharyngitis [Recovering/Resolving]
  - Seasonal allergy [Unknown]
  - Lung disorder [Unknown]
  - Thrombosis [Unknown]
  - Pain [Unknown]
  - Incorrect dose administered [Unknown]
  - Wrong technique in product usage process [Unknown]
  - Off label use [Unknown]
  - Intentional product misuse [Unknown]

NARRATIVE: CASE EVENT DATE: 20160101
